FAERS Safety Report 4499805-0 (Version None)
Quarter: 2004Q4

REPORT INFORMATION
  Report Type: 
  Country: None (occurrence: None)
  Receive Date: 20041110
  Receipt Date: 20041110
  Transmission Date: 20050328
  Serious: Yes (Hospitalization)
  Sender: FDA-Public Use
  Company Number: None

PATIENT
  Age: 68 Year
  Sex: Male
  Weight: 99.8 kg

DRUGS (3)
  1. PHENYTOIN [Suspect]
     Indication: CONVULSION
     Dosage: 400MG,200MG BI, ORAL
     Route: 048
  2. HALOPERIDOL DECANOATE [Concomitant]
  3. DILANTIN [Concomitant]

REACTIONS (1)
  - LABORATORY TEST ABNORMAL [None]
